FAERS Safety Report 13204661 (Version 1)
Quarter: 2017Q1

REPORT INFORMATION
  Report Type: Spontaneous
  Country: US (occurrence: US)
  Receive Date: 20170208
  Receipt Date: 20170208
  Transmission Date: 20170428
  Serious: Yes (Hospitalization)
  Sender: FDA-Public Use
  Company Number: None

PATIENT
  Age: 69 Year
  Sex: Female
  Weight: 101.5 kg

DRUGS (1)
  1. PRALUENT [Suspect]
     Active Substance: ALIROCUMAB
     Indication: HYPERCHOLESTEROLAEMIA
     Route: 058
     Dates: start: 20160921, end: 20170118

REACTIONS (5)
  - Muscle spasms [None]
  - Myelitis transverse [None]
  - Hypoaesthesia [None]
  - Muscular weakness [None]
  - Paraparesis [None]

NARRATIVE: CASE EVENT DATE: 20170118
